FAERS Safety Report 13739831 (Version 1)
Quarter: 2017Q3

REPORT INFORMATION
  Report Type: Spontaneous
  Country: US (occurrence: US)
  Receive Date: 20170710
  Receipt Date: 20170710
  Transmission Date: 20171127
  Serious: No
  Sender: FDA-Public Use
  Company Number: None

PATIENT
  Sex: Female

DRUGS (1)
  1. COPAXONE [Suspect]
     Active Substance: GLATIRAMER ACETATE
     Indication: MULTIPLE SCLEROSIS
     Dosage: 40 MG 3 TIMES A WEEK SQ
     Route: 058
     Dates: start: 20151110

REACTIONS (4)
  - Swelling face [None]
  - Vomiting [None]
  - Diarrhoea [None]
  - Eye swelling [None]
